FAERS Safety Report 17226415 (Version 2)
Quarter: 2020Q1

REPORT INFORMATION
  Report Type: Spontaneous
  Country: BR (occurrence: BR)
  Receive Date: 20200102
  Receipt Date: 20200107
  Transmission Date: 20200409
  Serious: Yes (Other)
  Sender: FDA-Public Use
  Company Number: BR-GEHC-2019CSU006644

PATIENT

DRUGS (9)
  1. CLOBAZAM. [Concomitant]
     Active Substance: CLOBAZAM
     Indication: ANTIDEPRESSANT THERAPY
  2. VISIPAQUE [Suspect]
     Active Substance: IODIXANOL
     Indication: HEADACHE
  3. VISIPAQUE [Suspect]
     Active Substance: IODIXANOL
     Indication: TREMOR
  4. VISIPAQUE [Suspect]
     Active Substance: IODIXANOL
     Indication: EAR PAIN
  5. VISIPAQUE [Suspect]
     Active Substance: IODIXANOL
     Indication: VISION BLURRED
  6. ETNA [Concomitant]
     Active Substance: UNSPECIFIED INGREDIENT
     Indication: ANTIDEPRESSANT THERAPY
  7. VISIPAQUE [Suspect]
     Active Substance: IODIXANOL
     Indication: ASTROCYTOMA
  8. VISIPAQUE [Suspect]
     Active Substance: IODIXANOL
     Indication: COMPUTERISED TOMOGRAM HEAD
     Dosage: 71 ML, SINGLE
     Route: 042
     Dates: start: 20191219, end: 20191219
  9. VELAXIN [Concomitant]
     Indication: ANTIDEPRESSANT THERAPY

REACTIONS (5)
  - Rhinorrhoea [Recovered/Resolved]
  - Sneezing [Recovered/Resolved]
  - Pruritus [Recovered/Resolved]
  - Throat tightness [Recovered/Resolved]
  - Ocular hyperaemia [Recovered/Resolved]

NARRATIVE: CASE EVENT DATE: 20191219
